FAERS Safety Report 6818262-X (Version None)
Quarter: 2010Q3

REPORT INFORMATION
  Report Type: 
  Country: None (occurrence: None)
  Receive Date: 20100706
  Receipt Date: 20070309
  Transmission Date: 20110219
  Serious: No
  Sender: FDA-Public Use
  Company Number: US-PFIZER INC-2007019409

PATIENT
  Sex: Female

DRUGS (1)
  1. ZMAX [Suspect]
     Indication: OROPHARYNGEAL PAIN
     Dosage: 2 G/60 ML
     Route: 048
     Dates: start: 20070201

REACTIONS (1)
  - TINNITUS [None]
